FAERS Safety Report 16811170 (Version 2)
Quarter: 2020Q1

REPORT INFORMATION
  Report Type: Spontaneous
  Country: JP (occurrence: JP)
  Receive Date: 20190916
  Receipt Date: 20200220
  Transmission Date: 20200409
  Serious: Yes (Other)
  Sender: FDA-Public Use
  Company Number: JP-JNJFOC-20190907786

PATIENT
  Age: 86 Year
  Sex: Female

DRUGS (2)
  1. SIMPONI [Suspect]
     Active Substance: GOLIMUMAB
     Dosage: UNKNOWN,LEFT UPPER WRIST
     Route: 058
     Dates: start: 20190903, end: 20190903
  2. SIMPONI [Suspect]
     Active Substance: GOLIMUMAB
     Indication: RHEUMATOID ARTHRITIS
     Dosage: UNKNOWN,RIGHT UPPER WRIST?GOLIMUMAB (GENETICAL RECOMBINATION): 50 MG
     Route: 058
     Dates: start: 20190806, end: 20190806

REACTIONS (4)
  - Injection site pain [Recovering/Resolving]
  - Injury associated with device [Unknown]
  - Needle issue [Unknown]
  - Needle issue [Recovering/Resolving]

NARRATIVE: CASE EVENT DATE: 20190903
